FAERS Safety Report 13125571 (Version 1)
Quarter: 2017Q1

REPORT INFORMATION
  Report Type: Spontaneous
  Country: IS (occurrence: IS)
  Receive Date: 20170118
  Receipt Date: 20170118
  Transmission Date: 20170428
  Serious: Yes (Death)
  Sender: FDA-Public Use
  Company Number: IS-PFIZER INC-2017021340

PATIENT
  Sex: Female

DRUGS (1)
  1. CONTALGIN UNO DEPOTKAPSLER [Suspect]
     Active Substance: MORPHINE SULFATE
     Dosage: UNK

REACTIONS (1)
  - Drug abuse [Fatal]
